FAERS Safety Report 7892662-1 (Version None)
Quarter: 2011Q4

REPORT INFORMATION
  Report Type: 
  Country: None (occurrence: None)
  Receive Date: 20111102
  Receipt Date: 20111019
  Transmission Date: 20120403
  Serious: Yes (Other)
  Sender: FDA-Public Use
  Company Number: 1000025018

PATIENT
  Age: 33 Year
  Sex: Female

DRUGS (5)
  1. TRUVADA [Suspect]
     Dosage: ORAL
     Route: 048
     Dates: start: 20090101, end: 20110921
  2. ISENTRESS [Suspect]
     Dosage: ORAL
     Route: 048
     Dates: start: 20100101, end: 20110921
  3. ESCITALOPRAM [Suspect]
     Dosage: ORAL
     Route: 048
     Dates: start: 20110509
  4. TERCIAN (CYAMEMAZINE) [Suspect]
     Dosage: ORAL
     Route: 048
  5. APPROVEL (IRBESARTAN) (IRBESARTAN) [Concomitant]

REACTIONS (2)
  - BLOOD AMYLASE INCREASED [None]
  - LIPASE INCREASED [None]
